FAERS Safety Report 11067379 (Version 1)
Quarter: 2015Q2

REPORT INFORMATION
  Report Type: Spontaneous
  Country: US (occurrence: US)
  Receive Date: 20150427
  Receipt Date: 20150427
  Transmission Date: 20150821
  Serious: Yes (Other)
  Sender: FDA-Public Use
  Company Number: US-ASTRAZENECA-2015SE38218

PATIENT
  Sex: Female

DRUGS (11)
  1. ETHANOL [Concomitant]
     Active Substance: ALCOHOL
  2. EVEROLIMUS [Concomitant]
     Active Substance: EVEROLIMUS
     Route: 048
     Dates: start: 201412
  3. AROMASIN [Concomitant]
     Active Substance: EXEMESTANE
     Route: 048
     Dates: start: 2011
  4. FASLODEX [Suspect]
     Active Substance: FULVESTRANT
     Route: 030
     Dates: start: 201308
  5. AROMASIN [Concomitant]
     Active Substance: EXEMESTANE
     Route: 048
     Dates: start: 20140809
  6. EVEROLIMUS [Concomitant]
     Active Substance: EVEROLIMUS
     Route: 048
     Dates: start: 20140809
  7. EVEROLIMUS [Concomitant]
     Active Substance: EVEROLIMUS
     Route: 048
  8. EVEROLIMUS [Concomitant]
     Active Substance: EVEROLIMUS
     Route: 048
     Dates: start: 201501
  9. ANASTROZOLE. [Concomitant]
     Active Substance: ANASTROZOLE
     Dates: start: 201308
  10. EVEROLIMUS [Concomitant]
     Active Substance: EVEROLIMUS
     Route: 048
     Dates: start: 201409
  11. IBRANCE [Concomitant]
     Active Substance: PALBOCICLIB

REACTIONS (8)
  - Osteonecrosis of jaw [Unknown]
  - Gait disturbance [Unknown]
  - Hyperlipidaemia [Unknown]
  - Mucosal inflammation [Unknown]
  - Dyslipidaemia [Unknown]
  - Disease progression [Unknown]
  - Thrombocytopenia [Unknown]
  - Nystagmus [Unknown]
